FAERS Safety Report 25872731 (Version 1)
Quarter: 2025Q4

REPORT INFORMATION
  Report Type: Spontaneous
  Country: JP (occurrence: JP)
  Receive Date: 20251002
  Receipt Date: 20251002
  Transmission Date: 20260117
  Serious: Yes (Other)
  Sender: ROCHE
  Company Number: JP-CHEPLA-2025011272

PATIENT
  Age: 55 Year
  Sex: Male

DRUGS (1)
  1. VALGANCICLOVIR [Suspect]
     Active Substance: VALGANCICLOVIR
     Indication: Cytomegalovirus enterocolitis
     Route: 048

REACTIONS (3)
  - Cytomegalovirus colitis [Recovering/Resolving]
  - Cytopenia [Unknown]
  - Off label use [Unknown]
